FAERS Safety Report 18246274 (Version 1)
Quarter: 2020Q3

REPORT INFORMATION
  Report Type: Spontaneous
  Country: US (occurrence: US)
  Receive Date: 20200909
  Receipt Date: 20200909
  Transmission Date: 20201103
  Serious: Yes (Disabling)
  Sender: FDA-Public Use
  Company Number: None

PATIENT
  Age: 69 Year
  Sex: Female
  Weight: 110.25 kg

DRUGS (11)
  1. HCTZ [Concomitant]
     Active Substance: HYDROCHLOROTHIAZIDE
  2. DAILY VITAMIN [Concomitant]
     Active Substance: VITAMINS
  3. ALBUTERAL [Concomitant]
     Active Substance: ALBUTEROL
  4. ACCOLATE [Concomitant]
     Active Substance: ZAFIRLUKAST
  5. PULMICORT TURBUHALER [Concomitant]
     Active Substance: BUDESONIDE
  6. LOSARTAN. [Concomitant]
     Active Substance: LOSARTAN
  7. ADVIL [Concomitant]
     Active Substance: IBUPROFEN
  8. PAROXETINE. [Suspect]
     Active Substance: PAROXETINE
     Indication: DEPRESSION
     Dosage: ?          QUANTITY:90 TABLET(S);?
     Route: 048
     Dates: start: 20200603, end: 20200831
  9. SPIRAVA [Concomitant]
  10. PAROXETINE. [Concomitant]
     Active Substance: PAROXETINE
  11. IMODIUM [Concomitant]
     Active Substance: LOPERAMIDE HYDROCHLORIDE

REACTIONS (2)
  - Condition aggravated [None]
  - Product quality issue [None]

NARRATIVE: CASE EVENT DATE: 20200831
